FAERS Safety Report 11163012 (Version 3)
Quarter: 2015Q3

REPORT INFORMATION
  Report Type: Spontaneous
  Country: US (occurrence: US)
  Receive Date: 20150604
  Receipt Date: 20150824
  Transmission Date: 20151125
  Serious: Yes (Death, Other)
  Sender: FDA-Public Use
  Company Number: US-ASTRAZENECA-2013SE83368

PATIENT
  Age: 804 Month
  Sex: Male
  Weight: 99.8 kg

DRUGS (33)
  1. MS CONTIN [Concomitant]
     Active Substance: MORPHINE SULFATE
  2. ZANTAC [Concomitant]
     Active Substance: RANITIDINE HYDROCHLORIDE
     Route: 048
     Dates: start: 20110817
  3. TYLENOL [Concomitant]
     Active Substance: ACETAMINOPHEN
     Dates: start: 20110817
  4. DILAUDID [Concomitant]
     Active Substance: HYDROMORPHONE HYDROCHLORIDE
     Dates: start: 20110817
  5. BYETTA [Suspect]
     Active Substance: EXENATIDE
     Indication: TYPE 2 DIABETES MELLITUS
     Route: 065
     Dates: start: 20051109
  6. DEXAMETHASONE. [Concomitant]
     Active Substance: DEXAMETHASONE
  7. THORAZINE [Concomitant]
     Active Substance: CHLORPROMAZINE
  8. SENOKOT-S [Concomitant]
     Active Substance: DOCUSATE SODIUM\SENNOSIDES
     Dosage: ONE TABLET TWO TIMES A DAY
     Route: 048
     Dates: start: 20110818
  9. BYSTOLIC [Concomitant]
     Active Substance: NEBIVOLOL HYDROCHLORIDE
     Route: 048
     Dates: start: 20110718
  10. PERCOCET/ENOOCET/ROXICET [Concomitant]
     Dosage: 5/325 MG, EVERY FOUR HOURS
     Dates: start: 20110817
  11. CISPLATIN. [Concomitant]
     Active Substance: CISPLATIN
     Dates: start: 20120711
  12. SYNTHROID [Concomitant]
     Active Substance: LEVOTHYROXINE SODIUM
     Route: 048
     Dates: start: 20110718
  13. GLUCOPHAGE [Concomitant]
     Active Substance: METFORMIN HYDROCHLORIDE
     Route: 048
     Dates: start: 20110817
  14. BYETTA [Suspect]
     Active Substance: EXENATIDE
     Indication: TYPE 2 DIABETES MELLITUS
     Dosage: 10 MCG/O.04 ML, DAILY
     Route: 065
     Dates: start: 20110518
  15. ATIVAN [Concomitant]
     Active Substance: LORAZEPAM
     Route: 048
  16. ERBITUX [Concomitant]
     Active Substance: CETUXIMAB
  17. LIPITOR [Concomitant]
     Active Substance: ATORVASTATIN CALCIUM
     Route: 048
     Dates: start: 20110718
  18. NEURONTIN [Concomitant]
     Active Substance: GABAPENTIN
  19. LEVSIN [Concomitant]
     Active Substance: HYOSCYAMINE SULFATE
  20. HYDRODIURIL [Concomitant]
     Active Substance: HYDROCHLOROTHIAZIDE
     Route: 048
     Dates: start: 20110817
  21. ZOFRAN [Concomitant]
     Active Substance: ONDANSETRON HYDROCHLORIDE
     Dates: start: 20110817
  22. REGLAN [Concomitant]
     Active Substance: METOCLOPRAMIDE HYDROCHLORIDE
     Dates: start: 20110817
  23. PRILOSEC [Concomitant]
     Active Substance: OMEPRAZOLE MAGNESIUM
     Dosage: L0 MG-325 MG
  24. TEMAZEPAM. [Concomitant]
     Active Substance: TEMAZEPAM
     Route: 048
  25. PEPCID [Concomitant]
     Active Substance: FAMOTIDINE
     Route: 048
     Dates: start: 20110817
  26. OSCAL [Concomitant]
     Active Substance: CALCIUM CARBONATE
     Route: 048
     Dates: start: 20110817
  27. BYETTA [Suspect]
     Active Substance: EXENATIDE
     Indication: TYPE 2 DIABETES MELLITUS
     Dosage: UNK
     Route: 065
     Dates: start: 200601, end: 2011
  28. BYETTA [Suspect]
     Active Substance: EXENATIDE
     Indication: TYPE 2 DIABETES MELLITUS
     Dosage: 10 MCG/O.04 ML  DAILY
     Route: 065
     Dates: start: 20120609
  29. CELEXA [Concomitant]
     Active Substance: CITALOPRAM HYDROBROMIDE
     Route: 048
     Dates: start: 20110817
  30. PROCARDIA XL [Concomitant]
     Active Substance: NIFEDIPINE
     Route: 048
     Dates: start: 20110817
  31. KEFLEX [Concomitant]
     Active Substance: CEPHALEXIN
     Route: 048
     Dates: start: 20110817
  32. ANCEF [Concomitant]
     Active Substance: CEFAZOLIN SODIUM
     Dates: start: 20110817
  33. APRESOLINE HYDROCHLORIDE [Concomitant]
     Active Substance: HYDRALAZINE HYDROCHLORIDE
     Dates: start: 20110817

REACTIONS (10)
  - Pharyngeal cancer [Unknown]
  - Tongue neoplasm malignant stage unspecified [Unknown]
  - Papillary thyroid cancer [Fatal]
  - Lip squamous cell carcinoma [Unknown]
  - Metastases to lung [Unknown]
  - Lip and/or oral cavity cancer [Unknown]
  - Hypothyroidism [Unknown]
  - Metastases to lymph nodes [Unknown]
  - Metastases to neck [Unknown]
  - Head and neck cancer [Unknown]

NARRATIVE: CASE EVENT DATE: 201107
